FAERS Safety Report 6269794-7 (Version None)
Quarter: 2009Q3

REPORT INFORMATION
  Report Type: 
  Country: None (occurrence: None)
  Receive Date: 20090716
  Receipt Date: 20090709
  Transmission Date: 20100115
  Serious: Yes (Hospitalization, Other)
  Sender: FDA-Public Use
  Company Number: US-JNJFOC-20090702918

PATIENT
  Sex: Male

DRUGS (4)
  1. ULTRAM [Suspect]
     Indication: DRUG USE FOR UNKNOWN INDICATION
     Dosage: 40-75 TABLETS (^ASSUME 50^). TAKEN OVER A 10-12 HOUR PERIOD.
     Route: 048
  2. BARBITURATES [Suspect]
     Indication: DRUG USE FOR UNKNOWN INDICATION
     Route: 065
  3. OPIATES [Suspect]
     Indication: DRUG USE FOR UNKNOWN INDICATION
     Route: 065
  4. TETRAHYDROCANNABINOL [Suspect]
     Indication: DRUG USE FOR UNKNOWN INDICATION
     Route: 065

REACTIONS (9)
  - ABNORMAL BEHAVIOUR [None]
  - CONVULSION [None]
  - DRUG DEPENDENCE [None]
  - ELECTROCARDIOGRAM ABNORMAL [None]
  - MYDRIASIS [None]
  - OVERDOSE [None]
  - RHABDOMYOLYSIS [None]
  - SELF-MEDICATION [None]
  - TACHYCARDIA [None]
